FAERS Safety Report 26124816 (Version 1)
Quarter: 2025Q4

REPORT INFORMATION
  Report Type: Spontaneous
  Country: EU (occurrence: EU)
  Receive Date: 20251205
  Receipt Date: 20251205
  Transmission Date: 20260117
  Serious: Yes (Hospitalization)
  Sender: ABBVIE
  Company Number: EU-ABBVIE-6571843

PATIENT
  Sex: Male

DRUGS (13)
  1. FOSCARBIDOPA\FOSLEVODOPA [Suspect]
     Active Substance: FOSCARBIDOPA\FOSLEVODOPA
     Indication: Parkinson^s disease
     Route: 058
  2. FOSCARBIDOPA\FOSLEVODOPA [Suspect]
     Active Substance: FOSCARBIDOPA\FOSLEVODOPA
     Route: 058
  3. BISOPROLOL FUMARATE [Concomitant]
     Active Substance: BISOPROLOL FUMARATE
     Indication: Product used for unknown indication
     Dosage: STRENGTH  2.5MG
  4. POLYETHYLENE GLYCOL 3350 [Concomitant]
     Active Substance: POLYETHYLENE GLYCOL 3350
     Indication: Product used for unknown indication
     Dosage: 13.125G SOLUTION SACHET
  5. SODIUM CHLORIDE [Concomitant]
     Active Substance: SODIUM CHLORIDE
     Indication: Product used for unknown indication
     Dosage: ELECTROLYTE 0.3507 G
  6. PVP IODINE [Concomitant]
     Active Substance: POVIDONE-IODINE
     Indication: Abscess
     Dosage: TIME INTERVAL: 0.33333333 DAYS
  7. CLOZAPINE [Concomitant]
     Active Substance: CLOZAPINE
     Indication: Product used for unknown indication
     Dosage: AS NEEDED
  8. DERMATOP [Concomitant]
     Active Substance: PREDNICARBATE
     Indication: Erythema
     Dosage: 2.5MG/G CREAM 1 APPLICATION (AS NEEDED)
  9. CAMPHOR (SYNTHETIC)\MENTHOL [Concomitant]
     Active Substance: CAMPHOR (SYNTHETIC)\MENTHOL
     Indication: Product used for unknown indication
     Dosage: 1X10 DROPS (AS NEEDED)
  10. SODIUM PICOSULFATE [Concomitant]
     Active Substance: SODIUM PICOSULFATE
     Indication: Product used for unknown indication
     Dosage: DROPS ?7.5MG/ML SOLUTION 1X10 DROPS (AS NEEDED)
  11. BENSERAZIDE\LEVODOPA [Concomitant]
     Active Substance: BENSERAZIDE\LEVODOPA
     Indication: Product used for unknown indication
     Dosage: 100MG/25MG 100MG 25MG TABLET??8 X 1 TABLET (24H, AS NEEDED), IF THE PRODUODOPA PUMP IS NOT WORKING
  12. POLYETHYLENE GLYCOLS [Concomitant]
     Active Substance: POLYETHYLENE GLYCOLS
     Indication: Product used for unknown indication
     Dosage: 1-0-0 SACHETS 1-0-0 SACHETS P.O.
     Route: 048
  13. METAMIZOLE [Concomitant]
     Active Substance: METAMIZOLE
     Indication: Product used for unknown indication
     Dosage: AS NEEDED DAILY PAUSED, AS NEEDED DAILY UP TO 4 TIMES 2 EACH

REACTIONS (7)
  - Catheter site abscess [Unknown]
  - COVID-19 [Unknown]
  - Depression [Unknown]
  - Catheter site erythema [Unknown]
  - Catheter site swelling [Unknown]
  - Benign prostatic hyperplasia [Unknown]
  - Accidental overdose [Unknown]
